FAERS Safety Report 10559886 (Version 1)
Quarter: 2014Q4

REPORT INFORMATION
  Report Type: Spontaneous
  Country: US (occurrence: None)
  Receive Date: 20141030
  Receipt Date: 20141030
  Transmission Date: 20150529
  Serious: Yes (Other)
  Sender: FDA-Public Use
  Company Number: US-SEPTODONT-201402275

PATIENT
  Age: 52 Year
  Sex: Female

DRUGS (2)
  1. LIDOCAINE HYDROCHLORIDE 2% WITH EPINEPHRINE 1 1000,000 INJECTION [Suspect]
     Active Substance: EPINEPHRINE BITARTRATE\LIDOCAINE HYDROCHLORIDE
     Indication: LOCAL ANAESTHESIA
     Route: 004
  2. SEPTOCAINE AND EPINEPHRINE [Suspect]
     Active Substance: ARTICAINE HYDROCHLORIDE\EPINEPHRINE BITARTRATE
     Indication: LOCAL ANAESTHESIA
     Route: 004

REACTIONS (6)
  - Anaesthetic complication [None]
  - Anxiety [None]
  - Tremor [None]
  - Heart rate increased [None]
  - Dehydration [None]
  - White blood cell count decreased [None]
